FAERS Safety Report 9366325 (Version 3)
Quarter: 2013Q3

REPORT INFORMATION
  Report Type: Spontaneous
  Country: US (occurrence: US)
  Receive Date: 20130625
  Receipt Date: 20130823
  Transmission Date: 20140515
  Serious: Yes (Other)
  Sender: FDA-Public Use
  Company Number: US-SANOFI-AVENTIS-2013SA048414

PATIENT
  Age: 45 Year
  Sex: Female
  Weight: 49.44 kg

DRUGS (8)
  1. AUBAGIO [Suspect]
     Indication: MULTIPLE SCLEROSIS
     Route: 048
     Dates: start: 20130315, end: 20130725
  2. CYMBATA [Concomitant]
     Indication: PAIN
     Route: 065
  3. CYMBATA [Concomitant]
     Indication: DEPRESSION
     Route: 065
  4. TRAZODONE [Concomitant]
     Indication: SLEEP DISORDER
     Route: 065
  5. SACTURA [Concomitant]
     Route: 065
  6. NECON BIRTH CONTROL [Concomitant]
     Indication: ACNE
     Route: 065
  7. NECON BIRTH CONTROL [Concomitant]
     Indication: CONTRACEPTION
     Route: 065
  8. XANAX [Concomitant]
     Indication: ANXIETY
     Route: 065

REACTIONS (11)
  - Fall [Not Recovered/Not Resolved]
  - Rib fracture [Not Recovered/Not Resolved]
  - Pneumothorax [Not Recovered/Not Resolved]
  - Pituitary tumour [Unknown]
  - Flatulence [Unknown]
  - Anxiety [Not Recovered/Not Resolved]
  - Weight decreased [Not Recovered/Not Resolved]
  - Diarrhoea [Not Recovered/Not Resolved]
  - Faecal incontinence [Not Recovered/Not Resolved]
  - Hypoaesthesia [Recovered/Resolved]
  - Alopecia [Not Recovered/Not Resolved]
